FAERS Safety Report 4873406-4 (Version None)
Quarter: 2005Q4

REPORT INFORMATION
  Report Type: 
  Country: None (occurrence: None)
  Receive Date: 20051201
  Receipt Date: 20050810
  Transmission Date: 20060501
  Serious: No
  Sender: FDA-Public Use
  Company Number: 2005PV001308

PATIENT
  Sex: Male

DRUGS (2)
  1. BYETTA [Suspect]
     Indication: DIABETES MELLITUS
     Dosage: 5 MCG; UNKNOWN; SC
     Route: 058
     Dates: start: 20050601
  2. INSULIN [Concomitant]

REACTIONS (1)
  - RASH MACULAR [None]
